FAERS Safety Report 10540481 (Version 1)
Quarter: 2014Q4

REPORT INFORMATION
  Report Type: Spontaneous
  Country: US (occurrence: None)
  Receive Date: 20141009
  Receipt Date: 20141009
  Transmission Date: 20150529
  Serious: Yes (Other)
  Sender: FDA-Public Use
  Company Number: 1000060345

PATIENT
  Sex: Female

DRUGS (3)
  1. LEXAPRO [Suspect]
     Active Substance: ESCITALOPRAM OXALATE
     Indication: DEPRESSION
     Dosage: - STOPPED
  2. TRIPTANS [Suspect]
     Active Substance: UNSPECIFIED INGREDIENT
     Indication: MIGRAINE
     Dosage: - STOPPED
  3. YASMIN (DROSPIRENONE W/ ETHINYLESTRADIOL) [Concomitant]

REACTIONS (2)
  - Serotonin syndrome [None]
  - Amnesia [None]
